FAERS Safety Report 15482219 (Version 2)
Quarter: 2019Q1

REPORT INFORMATION
  Report Type: Report from Study
  Country: US (occurrence: US)
  Receive Date: 20181010
  Receipt Date: 20190325
  Transmission Date: 20190417
  Serious: Yes (Hospitalization, Other)
  Sender: FDA-Public Use
  Company Number: US-ASTELLAS-2018US029630

PATIENT
  Age: 34 Year
  Sex: Female

DRUGS (1)
  1. ISAVUCONAZOLE [Suspect]
     Active Substance: ISAVUCONAZOLE
     Indication: PNEUMONIA
     Route: 048
     Dates: end: 201807

REACTIONS (6)
  - Pneumonia [Unknown]
  - Product dose omission [Unknown]
  - Oncologic complication [Unknown]
  - Product use in unapproved indication [Unknown]
  - Chronic sinusitis [Unknown]
  - Brain oedema [Unknown]

NARRATIVE: CASE EVENT DATE: 201807
